FAERS Safety Report 9473820 (Version 2)
Quarter: 2013Q3

REPORT INFORMATION
  Report Type: Spontaneous
  Country: US (occurrence: US)
  Receive Date: 20130823
  Receipt Date: 20130823
  Transmission Date: 20140515
  Serious: Yes (Other)
  Sender: FDA-Public Use
  Company Number: US-BRISTOL-MYERS SQUIBB COMPANY-17023888

PATIENT
  Age: 30 Year
  Sex: Female
  Weight: 77.1 kg

DRUGS (2)
  1. SPRYCEL [Suspect]
     Indication: CHRONIC MYELOID LEUKAEMIA
     Dates: start: 201203
  2. MAGNESIUM [Concomitant]

REACTIONS (4)
  - Oligomenorrhoea [Unknown]
  - Folliculitis [Unknown]
  - Abdominal pain lower [Unknown]
  - Abdominal distension [Unknown]
